FAERS Safety Report 4639171-0 (Version None)
Quarter: 2005Q2

REPORT INFORMATION
  Report Type: 
  Country: None (occurrence: None)
  Receive Date: 20050418
  Receipt Date: 20050407
  Transmission Date: 20051028
  Serious: Yes (Hospitalization)
  Sender: FDA-Public Use
  Company Number: 2005SE00634

PATIENT
  Age: 55 Year
  Sex: Male

DRUGS (2)
  1. KENZEN [Suspect]
     Indication: HYPERTENSION
     Dosage: 8 MG QD PO
     Route: 048
     Dates: start: 20020101, end: 20050125
  2. ODDIBIL [Concomitant]

REACTIONS (3)
  - AUTOIMMUNE HEPATITIS [None]
  - CYTOLYTIC HEPATITIS [None]
  - PROTHROMBIN TIME RATIO DECREASED [None]
